FAERS Safety Report 9261448 (Version 1)
Quarter: 2013Q2

REPORT INFORMATION
  Report Type: Spontaneous
  Country: US (occurrence: US)
  Receive Date: 20130429
  Receipt Date: 20130429
  Transmission Date: 20140414
  Serious: Yes (Other)
  Sender: FDA-Public Use
  Company Number: US-NICOBRDEVP-2013-06949

PATIENT
  Age: 49 Year
  Sex: Female

DRUGS (10)
  1. TETRACYCLINE HYDROCHLORIDE (WATSON LABORATORIES) [Suspect]
     Indication: ROSACEA
     Dosage: 500 MG, BID
     Route: 048
     Dates: end: 201106
  2. TETRACYCLINE HYDROCHLORIDE (WATSON LABORATORIES) [Suspect]
     Indication: OFF LABEL USE
     Dosage: 500 MG, TID
     Route: 048
     Dates: start: 201005
  3. PREDNISONE (WATSON LABORATORIES) [Suspect]
     Indication: POLYCHONDRITIS
     Dosage: UNKNOWN
     Route: 065
  4. METHOTREXATE (UNKNOWN) [Suspect]
     Indication: POLYCHONDRITIS
     Dosage: UNKNOWN
     Route: 065
  5. LEVOTHYROXINE [Concomitant]
     Indication: PRODUCT USED FOR UNKNOWN INDICATION
     Dosage: UNKNOWN
  6. CHOLECALCIFEROL [Concomitant]
     Indication: PRODUCT USED FOR UNKNOWN INDICATION
     Dosage: UNKNOWN
  7. CALCIUM CARBONATE AND VITAMIN D [Concomitant]
     Indication: PRODUCT USED FOR UNKNOWN INDICATION
     Dosage: UNKNOWN
  8. HYDROCHLOROTHIAZIDE [Concomitant]
     Indication: PRODUCT USED FOR UNKNOWN INDICATION
     Dosage: UNKNOWN
  9. MULTIVITAMIN                       /01229101/ [Concomitant]
     Indication: PRODUCT USED FOR UNKNOWN INDICATION
     Dosage: UNKNOWN
  10. ALIGN [Concomitant]
     Indication: PRODUCT USED FOR UNKNOWN INDICATION
     Dosage: UNKNOWN

REACTIONS (17)
  - Hepatotoxicity [Recovered/Resolved]
  - Eye swelling [Unknown]
  - Lacrimation increased [Unknown]
  - Hypoalbuminaemia [Recovered/Resolved]
  - Protein total decreased [Recovered/Resolved]
  - Blood alkaline phosphatase increased [Recovered/Resolved]
  - Fatigue [Recovered/Resolved]
  - Asthenia [Recovered/Resolved]
  - Off label use [Recovered/Resolved]
  - Swelling face [None]
  - Local swelling [None]
  - Rosacea [None]
  - Condition aggravated [None]
  - Hyperthyroidism [None]
  - Autoimmune thyroiditis [None]
  - Biopsy breast abnormal [None]
  - Metastatic neoplasm [None]
